FAERS Safety Report 16320300 (Version 7)
Quarter: 2022Q4

REPORT INFORMATION
  Report Type: Spontaneous
  Country: US (occurrence: US)
  Receive Date: 20190516
  Receipt Date: 20221111
  Transmission Date: 20230113
  Serious: Yes (Hospitalization, Other)
  Sender: FDA-Public Use
  Company Number: US-PFIZER INC-2018531148

PATIENT
  Age: 61 Year
  Sex: Female

DRUGS (3)
  1. RAPAMUNE [Suspect]
     Active Substance: SIROLIMUS
     Indication: Liver transplant
     Dosage: UNK
     Dates: start: 2004
  2. RAPAMUNE [Suspect]
     Active Substance: SIROLIMUS
     Dosage: EVERY EVENING
     Route: 048
  3. RAPAMUNE [Suspect]
     Active Substance: SIROLIMUS
     Dosage: EVERY MORNING
     Route: 048

REACTIONS (5)
  - Pneumonia [Unknown]
  - Immune system disorder [Unknown]
  - COVID-19 [Unknown]
  - Arthropathy [Unknown]
  - Off label use [Unknown]

NARRATIVE: CASE EVENT DATE: 20040101
